FAERS Safety Report 7807716-5 (Version None)
Quarter: 2011Q4

REPORT INFORMATION
  Report Type: 
  Country: None (occurrence: None)
  Receive Date: 20111011
  Receipt Date: 20110930
  Transmission Date: 20120403
  Serious: Yes (Death)
  Sender: FDA-Public Use
  Company Number: US-ACTELION-A-US2011-54057

PATIENT

DRUGS (1)
  1. TRACLEER [Suspect]
     Indication: PULMONARY HYPERTENSION
     Dosage: UNK MG, UNK
     Route: 048
     Dates: start: 20110407, end: 20110908

REACTIONS (1)
  - CARDIAC ARREST [None]
